FAERS Safety Report 6402918-7 (Version None)
Quarter: 2009Q4

REPORT INFORMATION
  Report Type: 
  Country: None (occurrence: None)
  Receive Date: 20091014
  Receipt Date: 20091014
  Transmission Date: 20100525
  Serious: Yes (Disabling, Other)
  Sender: FDA-Public Use
  Company Number: None

PATIENT
  Age: 39 Year
  Sex: Female
  Weight: 65.7716 kg

DRUGS (1)
  1. MIRENA [Suspect]
     Indication: MENSTRUATION IRREGULAR
     Dosage: 20 UG DAY INTRA-UTERINE
     Route: 015
     Dates: start: 20090206, end: 20091013

REACTIONS (2)
  - ABDOMINAL PAIN LOWER [None]
  - MIGRAINE [None]
